FAERS Safety Report 6435282-8 (Version None)
Quarter: 2009Q4

REPORT INFORMATION
  Report Type: 
  Country: None (occurrence: None)
  Receive Date: 20091110
  Receipt Date: 20091102
  Transmission Date: 20100525
  Serious: Yes (Hospitalization)
  Sender: FDA-Public Use
  Company Number: US-AMGEN-US372367

PATIENT
  Sex: Female

DRUGS (4)
  1. NPLATE [Suspect]
     Indication: IDIOPATHIC THROMBOCYTOPENIC PURPURA
     Dates: start: 20090804, end: 20090924
  2. CORTICOSTEROID NOS [Concomitant]
     Dates: start: 20050501
  3. IMMUNOGLOBULINS [Concomitant]
     Dates: start: 20090515
  4. AZATHIOPRINE [Concomitant]
     Dates: start: 20080516

REACTIONS (1)
  - ACUTE MYELOID LEUKAEMIA [None]
